FAERS Safety Report 11188617 (Version 1)
Quarter: 2015Q2

REPORT INFORMATION
  Report Type: Spontaneous
  Country: US (occurrence: None)
  Receive Date: 20150612
  Receipt Date: 20150612
  Transmission Date: 20150821
  Serious: Yes (Other)
  Sender: FDA-Public Use
  Company Number: None

PATIENT
  Age: 48 Year
  Sex: Female

DRUGS (1)
  1. RIBAVIRIN 200MG [Suspect]
     Active Substance: RIBAVIRIN

REACTIONS (5)
  - Anger [None]
  - Mental disorder [None]
  - Feeling abnormal [None]
  - Agitation [None]
  - Memory impairment [None]

NARRATIVE: CASE EVENT DATE: 20150610
